FAERS Safety Report 12408738 (Version 3)
Quarter: 2020Q3

REPORT INFORMATION
  Report Type: Report from Study
  Country: JP (occurrence: JP)
  Receive Date: 20160526
  Receipt Date: 20161117
  Transmission Date: 20201105
  Serious: Yes (Other)
  Sender: FDA-Public Use
  Company Number: JP-ROCHE-1764073

PATIENT
  Age: 73 Year
  Sex: Female
  Weight: 46 kg

DRUGS (1)
  1. ALECTINIB. [Suspect]
     Active Substance: ALECTINIB
     Indication: LUNG ADENOCARCINOMA
     Route: 048
     Dates: start: 20141003, end: 20151020

REACTIONS (2)
  - Neutrophil count decreased [Recovered/Resolved]
  - Blood bilirubin increased [Recovered/Resolved]

NARRATIVE: CASE EVENT DATE: 20141006
